FAERS Safety Report 8039475-8 (Version None)
Quarter: 2012Q1

REPORT INFORMATION
  Report Type: 
  Country: None (occurrence: None)
  Receive Date: 20120111
  Receipt Date: 20111216
  Transmission Date: 20120608
  Serious: No
  Sender: FDA-Public Use
  Company Number: US-AMGEN-USASP2011067297

PATIENT
  Age: 76 Year
  Sex: Female

DRUGS (1)
  1. ENBREL [Suspect]
     Indication: RHEUMATOID ARTHRITIS
     Dosage: 50 MG, QWK
     Dates: start: 20050101, end: 20111209

REACTIONS (6)
  - FATIGUE [None]
  - PAIN [None]
  - DYSPNOEA [None]
  - MYALGIA [None]
  - DERMATITIS BULLOUS [None]
  - HERPES ZOSTER [None]
